FAERS Safety Report 22079005 (Version 1)
Quarter: 2023Q1

REPORT INFORMATION
  Report Type: Spontaneous
  Country: None (occurrence: IR)
  Receive Date: 20230309
  Receipt Date: 20230309
  Transmission Date: 20230417
  Serious: Yes (Other)
  Sender: FDA-Public Use
  Company Number: IR-ACIC Fine Chemicals Inc-2138878

PATIENT
  Age: 28 Year
  Sex: Female

DRUGS (3)
  1. PANTOPRAZOLE SODIUM [Suspect]
     Active Substance: PANTOPRAZOLE SODIUM
     Indication: Abdominal pain upper
  2. PANTOPRAZOLE SODIUM [Suspect]
     Active Substance: PANTOPRAZOLE SODIUM
  3. BUPROPION [Suspect]
     Active Substance: BUPROPION

REACTIONS (3)
  - Gastrointestinal haemorrhage [Recovered/Resolved]
  - Gastric ulcer [Recovered/Resolved]
  - Abdominal pain [Recovered/Resolved]
